FAERS Safety Report 9355834 (Version 1)
Quarter: 2013Q2

REPORT INFORMATION
  Report Type: Spontaneous
  Country: IT (occurrence: None)
  Receive Date: 20130614
  Receipt Date: 20130614
  Transmission Date: 20140414
  Serious: Yes (Other)
  Sender: FDA-Public Use
  Company Number: IT-1198731

PATIENT
  Age: 72 Year
  Sex: Female

DRUGS (6)
  1. MOXIFLOXACIN [Suspect]
     Indication: KERATITIS
     Dosage: TOPICAL EYE DROPS/OPHTHALMIC SOLUTION 0.5%.
     Route: 047
  2. VANCOMYCIN [Suspect]
     Indication: KERATITIS
     Route: 031
  3. CHLORAMPHENICOL [Suspect]
     Indication: KERATITIS
  4. TETRACYCLINE [Suspect]
     Indication: KERATITIS
  5. PROPAMIDINE [Suspect]
     Indication: KERATITIS
     Dosage: DOSAGE TAKEN X1 EVERY Q12H.
     Route: 048
  6. CEFOTAXIME [Suspect]
     Indication: KERATITIS
     Route: 048

REACTIONS (3)
  - Ulcerative keratitis [None]
  - Condition aggravated [None]
  - Drug ineffective [None]
